FAERS Safety Report 11122726 (Version 2)
Quarter: 2015Q3

REPORT INFORMATION
  Report Type: Report from Study
  Country: US (occurrence: US)
  Receive Date: 20150519
  Receipt Date: 20150811
  Transmission Date: 20151125
  Serious: Yes (Other)
  Sender: FDA-Public Use
  Company Number: US-SA-2015SA065879

PATIENT
  Age: 51 Year
  Sex: Female

DRUGS (1)
  1. AUBAGIO [Suspect]
     Active Substance: TERIFLUNOMIDE
     Indication: MULTIPLE SCLEROSIS
     Route: 048
     Dates: start: 20150210

REACTIONS (6)
  - Off label use [Unknown]
  - Vision blurred [Not Recovered/Not Resolved]
  - Diarrhoea [Unknown]
  - Blindness [Recovered/Resolved]
  - Diabetes mellitus [Unknown]
  - Blindness [Recovered/Resolved]

NARRATIVE: CASE EVENT DATE: 2015
